FAERS Safety Report 18364691 (Version 2)
Quarter: 2020Q4

REPORT INFORMATION
  Report Type: Spontaneous
  Country: NO (occurrence: NO)
  Receive Date: 20201009
  Receipt Date: 20201022
  Transmission Date: 20210114
  Serious: Yes (Congenital Anomaly)
  Sender: FDA-Public Use
  Company Number: NO-BAUSCH-BL-2020-028179

PATIENT
  Sex: Female

DRUGS (6)
  1. ZYPREXA [Interacting]
     Active Substance: OLANZAPINE
     Indication: PSYCHOTIC DISORDER
     Route: 064
  2. DIAZEPAM. [Suspect]
     Active Substance: DIAZEPAM
     Indication: PSYCHOTIC DISORDER
     Route: 064
  3. LITHIONIT [Interacting]
     Active Substance: LITHIUM SULFATE
     Indication: PRODUCT USED FOR UNKNOWN INDICATION
     Route: 064
  4. CANNABIS [Concomitant]
     Active Substance: CANNABIS SATIVA SUBSP. INDICA TOP
     Indication: PRODUCT USED FOR UNKNOWN INDICATION
  5. ALCOHOL. [Concomitant]
     Active Substance: ALCOHOL
     Indication: PRODUCT USED FOR UNKNOWN INDICATION
  6. HALDOL [Interacting]
     Active Substance: HALOPERIDOL
     Indication: PSYCHOTIC DISORDER
     Route: 064

REACTIONS (5)
  - Aplasia [Not Recovered/Not Resolved]
  - Drug interaction [Unknown]
  - Syndactyly [Unknown]
  - Aplasia [Unknown]
  - Foetal exposure during pregnancy [Unknown]

NARRATIVE: CASE EVENT DATE: 20200908
